FAERS Safety Report 6354721-4 (Version None)
Quarter: 2009Q3

REPORT INFORMATION
  Report Type: 
  Country: None (occurrence: None)
  Receive Date: 20090909
  Receipt Date: 20090820
  Transmission Date: 20100115
  Serious: Yes (Death)
  Sender: FDA-Public Use
  Company Number: 2008AL010964

PATIENT
  Age: 80 Year
  Sex: Female

DRUGS (42)
  1. DIGOXIN [Suspect]
     Dosage: 0.25MG, DAILY, PO 0.125MG, QD, PO
     Route: 048
     Dates: start: 20080430
  2. NOVOLOG [Concomitant]
  3. CARAFATE [Concomitant]
  4. PAMELOR [Concomitant]
  5. ZESTRIL [Concomitant]
  6. ZOCOR [Concomitant]
  7. LOPRESSOR [Concomitant]
  8. PREDNISONE [Concomitant]
  9. K-DUR [Concomitant]
  10. PRILOSEC [Concomitant]
  11. ASPIRIN [Concomitant]
  12. KEFLEX [Concomitant]
  13. PERCOCET [Concomitant]
  14. GLUCOPHAGE [Concomitant]
  15. LASIX [Concomitant]
  16. AMBIEN [Concomitant]
  17. FOSAMEX [Concomitant]
  18. POTASSIUM CHLORIDE [Concomitant]
  19. CALCIUM [Concomitant]
  20. NORTRIPTYLINE HCL [Concomitant]
  21. BION TEARS [Concomitant]
  22. LISINOPRIL [Concomitant]
  23. METOPROLOL TARTRATE [Concomitant]
  24. NITROGLYCERIN [Concomitant]
  25. FUROSEMIDE [Concomitant]
  26. FOSAMAX [Concomitant]
  27. CIPROFLAXACIN [Concomitant]
  28. ISOSORBIDE MONONITRATE [Concomitant]
  29. CLINDAMYCIN [Concomitant]
  30. METFORMIN HCL [Concomitant]
  31. LEXAPRO [Concomitant]
  32. OXYCODONE [Concomitant]
  33. OMEPRAZOLE [Concomitant]
  34. SIMVASTATIN [Concomitant]
  35. ZOLPIDEM [Concomitant]
  36. NITROGLYCERIN [Concomitant]
  37. AVELIDE [Concomitant]
  38. LORTEL [Concomitant]
  39. VANCOMYCIN [Concomitant]
  40. METRONIDAZOLE [Concomitant]
  41. HEPARIN [Concomitant]
  42. HYCORTISONE [Concomitant]

REACTIONS (37)
  - ATRIAL FIBRILLATION [None]
  - CARDIAC FAILURE CONGESTIVE [None]
  - CARDIOACTIVE DRUG LEVEL INCREASED [None]
  - CHEST PAIN [None]
  - CLOSTRIDIUM DIFFICILE COLITIS [None]
  - COMMUNICATION DISORDER [None]
  - CONFUSIONAL STATE [None]
  - CONTUSION [None]
  - DEAFNESS NEUROSENSORY [None]
  - DIARRHOEA [None]
  - DIZZINESS [None]
  - DRUG DEPENDENCE [None]
  - DYSPNOEA [None]
  - EMOTIONAL DISORDER [None]
  - ENTEROCOLITIS INFECTIOUS [None]
  - FALL [None]
  - FIBROMYALGIA [None]
  - GLUCOSE TOLERANCE IMPAIRED [None]
  - HEADACHE [None]
  - HYPERCHOLESTEROLAEMIA [None]
  - HYPERHIDROSIS [None]
  - HYPOACUSIS [None]
  - HYPOTENSION [None]
  - INJURY [None]
  - LABILE HYPERTENSION [None]
  - OSTEOPOROSIS [None]
  - PAIN [None]
  - PERIPHERAL ISCHAEMIA [None]
  - POLYMYALGIA RHEUMATICA [None]
  - SEPSIS [None]
  - SKIN LACERATION [None]
  - TEMPORAL ARTERITIS [None]
  - TENDON RUPTURE [None]
  - TINNITUS [None]
  - URINARY TRACT INFECTION PSEUDOMONAL [None]
  - VISION BLURRED [None]
  - VITAMIN D DEFICIENCY [None]
